FAERS Safety Report 7276061-1 (Version None)
Quarter: 2011Q1

REPORT INFORMATION
  Report Type: 
  Country: None (occurrence: None)
  Receive Date: 20110204
  Receipt Date: 20110124
  Transmission Date: 20110831
  Serious: Yes (Hospitalization)
  Sender: FDA-Public Use
  Company Number: Z0007600A

PATIENT
  Sex: Female
  Weight: 63.1 kg

DRUGS (2)
  1. CHLORAMBUCIL [Suspect]
     Dosage: 10MGM2 PER DAY
     Route: 048
  2. OFATUMUMAB [Suspect]
     Route: 042

REACTIONS (1)
  - FEBRILE NEUTROPENIA [None]
